FAERS Safety Report 17097460 (Version 1)
Quarter: 2019Q4

REPORT INFORMATION
  Report Type: Other
  Country: US (occurrence: US)
  Receive Date: 20191202
  Receipt Date: 20191202
  Transmission Date: 20200122
  Serious: Yes (Hospitalization)
  Sender: FDA-Public Use
  Company Number: US-DEXPHARM-20191071

PATIENT
  Age: 49 Year
  Sex: Male

DRUGS (3)
  1. TRAMADOL. [Interacting]
     Active Substance: TRAMADOL
     Indication: OSTEOARTHRITIS
     Dosage: 50 MG DAILY
  2. TRAMADOL. [Interacting]
     Active Substance: TRAMADOL
     Indication: OSTEOARTHRITIS
     Dosage: 150 MG DAILY
  3. VENLAFAXINE [Suspect]
     Active Substance: VENLAFAXINE HYDROCHLORIDE
     Indication: MAJOR DEPRESSION
     Dosage: 75 MG DAILY

REACTIONS (3)
  - Mania [Recovered/Resolved]
  - Drug interaction [Recovered/Resolved]
  - Withdrawal syndrome [Recovered/Resolved]
